FAERS Safety Report 6876735-8 (Version None)
Quarter: 2010Q3

REPORT INFORMATION
  Report Type: 
  Country: None (occurrence: None)
  Receive Date: 20100727
  Receipt Date: 20100716
  Transmission Date: 20110219
  Serious: Yes (Other)
  Sender: FDA-Public Use
  Company Number: GB-CEPHALON-2010003888

PATIENT
  Sex: Female

DRUGS (4)
  1. TREANDA [Suspect]
     Indication: B-CELL LYMPHOMA
     Route: 041
     Dates: start: 20100127
  2. ALLOPURINOL [Concomitant]
  3. PREDNISOLONE [Concomitant]
  4. VINCRISTINE [Concomitant]

REACTIONS (5)
  - CYSTITIS [None]
  - DYSPNOEA [None]
  - RASH ERYTHEMATOUS [None]
  - STOMATITIS [None]
  - WEIGHT DECREASED [None]
